FAERS Safety Report 25148558 (Version 2)
Quarter: 2025Q2

REPORT INFORMATION
  Report Type: Spontaneous
  Country: AU (occurrence: None)
  Receive Date: 20250402
  Receipt Date: 20250425
  Transmission Date: 20250717
  Serious: Yes (Hospitalization)
  Sender: Alvotech
  Company Number: AU-ALVOTECHPMS-2025-ALVOTECHPMS-003553

PATIENT
  Sex: Female

DRUGS (1)
  1. ADALIMUMAB [Suspect]
     Active Substance: ADALIMUMAB
     Indication: Product used for unknown indication
     Route: 065

REACTIONS (7)
  - Pharyngeal swelling [Unknown]
  - Swelling [Unknown]
  - Balance disorder [Unknown]
  - Adverse event [Unknown]
  - Dizziness [Unknown]
  - Product substitution issue [Unknown]
  - Salivary gland enlargement [Unknown]
